FAERS Safety Report 9518329 (Version 1)
Quarter: 2013Q3

REPORT INFORMATION
  Report Type: Spontaneous
  Country: KW (occurrence: None)
  Receive Date: 20130910
  Receipt Date: 20130910
  Transmission Date: 20140515
  Serious: Yes (Hospitalization)
  Sender: FDA-Public Use
  Company Number: FK201304137

PATIENT
  Sex: Female

DRUGS (7)
  1. METHOTREXATE (MANUFACTURER UNKNOWN) (METHOTREXATE) (METHOTREXATE) [Suspect]
     Indication: SCLERITIS
  2. AZATHIOPRINE [Suspect]
     Indication: SCLERITIS
  3. MYCOPHENOLATE MOFETIL [Suspect]
     Indication: SCLERITIS
  4. CICLOSPORIN [Suspect]
     Indication: SCLERITIS
  5. CORTICOSTEROIDS [Concomitant]
  6. PREDNISOLONE (PREDNISOLONE) [Concomitant]
  7. ADALIMUMAB (ADALIMUMAB) [Concomitant]

REACTIONS (3)
  - Myelodysplastic syndrome [None]
  - Pancytopenia [None]
  - Lower respiratory tract infection [None]
